FAERS Safety Report 6652710-3 (Version None)
Quarter: 2010Q1

REPORT INFORMATION
  Report Type: 
  Country: None (occurrence: None)
  Receive Date: 20100326
  Receipt Date: 20100316
  Transmission Date: 20100710
  Serious: Yes (Disabling)
  Sender: FDA-Public Use
  Company Number: DE-JNJFOC-20100305194

PATIENT
  Age: 41 Year
  Sex: Female

DRUGS (2)
  1. LEVOFLOXACIN [Suspect]
     Indication: UPPER RESPIRATORY TRACT INFECTION
     Route: 048
  2. LEVOFLOXACIN [Suspect]
     Indication: PLEURISY
     Route: 048

REACTIONS (5)
  - MOTOR DYSFUNCTION [None]
  - MUSCULOSKELETAL CHEST PAIN [None]
  - SENSORY DISTURBANCE [None]
  - SOFT TISSUE INJURY [None]
  - TENDON PAIN [None]
